FAERS Safety Report 7030041-X (Version None)
Quarter: 2010Q4

REPORT INFORMATION
  Report Type: 
  Country: None (occurrence: None)
  Receive Date: 20101001
  Receipt Date: 20100923
  Transmission Date: 20110411
  Serious: Yes (Hospitalization, Other)
  Sender: FDA-Public Use
  Company Number: TRP_07286_2010

PATIENT
  Sex: Male

DRUGS (2)
  1. RIBASPHERE [Suspect]
     Indication: HEPATITIS C
     Dosage: (UNK [TEMPORARILY DISCONTINUED] ORAL)
     Route: 048
     Dates: start: 20100730
  2. PEG-INTRON [Suspect]
     Indication: HEPATITIS C
     Dosage: (UNK [TEMPORARILY DISCONTINUED] SUBCUTANEOUS)
     Route: 058
     Dates: start: 20100730

REACTIONS (6)
  - CHAPPED LIPS [None]
  - HAEMATOMA [None]
  - INJURY [None]
  - OEDEMA PERIPHERAL [None]
  - STAPHYLOCOCCAL INFECTION [None]
  - WHITE BLOOD CELL COUNT DECREASED [None]
